FAERS Safety Report 9076239 (Version 1)
Quarter: 2013Q1

REPORT INFORMATION
  Report Type: Report from Study
  Country: US (occurrence: US)
  Receive Date: 20130131
  Receipt Date: 20130131
  Transmission Date: 20140127
  Serious: No
  Sender: FDA-Public Use
  Company Number: US-ABBOTT-12P-163-1004128-00

PATIENT
  Age: 56 Year
  Sex: Female

DRUGS (4)
  1. HUMIRA [Suspect]
     Indication: RHEUMATOID ARTHRITIS
     Route: 058
     Dates: start: 20120921
  2. BYSTOLIC [Concomitant]
     Indication: HYPERTENSION
  3. VICODIN [Concomitant]
     Indication: PAIN
     Dosage: 5/500MG 6-8 TABS DAILY
  4. CYMBALTA [Concomitant]
     Indication: DEPRESSION

REACTIONS (1)
  - Wrong technique in drug usage process [Recovered/Resolved]
